FAERS Safety Report 21529649 (Version 8)
Quarter: 2023Q2

REPORT INFORMATION
  Report Type: Report from Study
  Country: US (occurrence: US)
  Receive Date: 20221031
  Receipt Date: 20230420
  Transmission Date: 20230721
  Serious: Yes (Hospitalization, Other)
  Sender: FDA-Public Use
  Company Number: US-HORIZON THERAPEUTICS-HZN-2022-008364

PATIENT

DRUGS (6)
  1. RAVICTI [Suspect]
     Active Substance: GLYCEROL PHENYLBUTYRATE
     Indication: Argininosuccinate synthetase deficiency
     Dosage: 0.3 ML (0.33 GRAMS) EVERY 8 HRS WITH MEALS
     Route: 065
     Dates: start: 20221024
  2. RAVICTI [Suspect]
     Active Substance: GLYCEROL PHENYLBUTYRATE
     Dosage: 0.22 G, TID (LOWER TARGET DOSE AT 2.75 G/M2/DAY)
     Route: 065
  3. RAVICTI [Suspect]
     Active Substance: GLYCEROL PHENYLBUTYRATE
     Dosage: 2.75 G/M2, QD
     Route: 065
  4. RAVICTI [Suspect]
     Active Substance: GLYCEROL PHENYLBUTYRATE
     Dosage: 4 ML, TID
     Route: 065
  5. BIOTIN [Concomitant]
     Active Substance: BIOTIN
     Dosage: UNK
     Route: 065
  6. BACITRACIN;POLYMYXIN [Concomitant]
     Dosage: UNK
     Route: 065

REACTIONS (13)
  - Hypoventilation [Unknown]
  - Neonatal dyspnoea [Unknown]
  - Drug metabolite level high [Unknown]
  - Blood sodium abnormal [Unknown]
  - Gastrooesophageal reflux disease [Unknown]
  - Lethargy [Unknown]
  - Infantile vomiting [Unknown]
  - Somnolence [Not Recovered/Not Resolved]
  - Urinary tract infection bacterial [Unknown]
  - Ammonia increased [Recovered/Resolved]
  - Avian influenza [Unknown]
  - Gastroenteritis enteroviral [Unknown]
  - Eating disorder [Recovered/Resolved]

NARRATIVE: CASE EVENT DATE: 20220101
